FAERS Safety Report 6184605-6 (Version None)
Quarter: 2009Q2

REPORT INFORMATION
  Report Type: 
  Country: None (occurrence: None)
  Receive Date: 20090508
  Receipt Date: 20090428
  Transmission Date: 20091009
  Serious: Yes (Other)
  Sender: FDA-Public Use
  Company Number: PHEH2009US04210

PATIENT
  Sex: Male

DRUGS (8)
  1. DESFERAL [Suspect]
  2. EXJADE [Suspect]
     Indication: HAEMOSIDEROSIS
     Dosage: 1000 MG, QD
     Route: 048
     Dates: start: 20090128
  3. FOLIC ACID [Concomitant]
     Dosage: 1 MG, QD
     Route: 048
  4. OXYCODONE HCL [Concomitant]
     Dosage: 5 MG, Q6H
     Route: 048
     Dates: start: 20030828, end: 20090430
  5. ADVAIR HFA [Concomitant]
  6. WARFARIN SODIUM [Concomitant]
  7. TOPROL-XL [Concomitant]
  8. RED BLOOD CELLS [Concomitant]

REACTIONS (9)
  - MACULAR DEGENERATION [None]
  - METAMORPHOPSIA [None]
  - MYODESOPSIA [None]
  - OCULAR TOXICITY [None]
  - RETINAL DEGENERATION [None]
  - RETINAL DISORDER [None]
  - RETINAL PIGMENT EPITHELIOPATHY [None]
  - VISUAL ACUITY REDUCED [None]
  - VISUAL IMPAIRMENT [None]
